FAERS Safety Report 20657658 (Version 2)
Quarter: 2022Q2

REPORT INFORMATION
  Report Type: Report from Study
  Country: BR (occurrence: BR)
  Receive Date: 20220331
  Receipt Date: 20220410
  Transmission Date: 20220720
  Serious: Yes (Other)
  Sender: FDA-Public Use
  Company Number: BR-BIOGEN-2022BI01108821

PATIENT
  Age: 58 Year
  Sex: Female
  Weight: 87 kg

DRUGS (3)
  1. TYSABRI [Suspect]
     Active Substance: NATALIZUMAB
     Indication: Multiple sclerosis
     Route: 042
     Dates: start: 202101
  2. CARBAMAZEPINE [Concomitant]
     Active Substance: CARBAMAZEPINE
     Indication: Trigeminal neuralgia
     Route: 048
     Dates: start: 2014
  3. VITAMIN D [Concomitant]
     Active Substance: VITAMIN D NOS
     Indication: Hypovitaminosis
     Dosage: 10 DROPS
     Route: 048
     Dates: start: 2017

REACTIONS (3)
  - Diabetes mellitus [Not Recovered/Not Resolved]
  - Hypertension [Recovered/Resolved with Sequelae]
  - Multiple sclerosis relapse [Unknown]

NARRATIVE: CASE EVENT DATE: 20211101
